FAERS Safety Report 10060535 (Version 3)
Quarter: 2014Q2

REPORT INFORMATION
  Report Type: Report from Study
  Country: US (occurrence: US)
  Receive Date: 20140404
  Receipt Date: 20140423
  Transmission Date: 20141212
  Serious: Yes (Hospitalization)
  Sender: FDA-Public Use
  Company Number: US-JNJFOC-20140319119

PATIENT
  Age: 13 Year
  Sex: Male
  Weight: 60 kg

DRUGS (8)
  1. REMICADE [Suspect]
     Indication: COLITIS
     Route: 042
     Dates: start: 20130920
  2. PROBIOTICS [Concomitant]
     Route: 065
  3. PREDNISONE [Concomitant]
     Route: 065
  4. 5-ASA [Concomitant]
     Route: 048
  5. CALCIUM WITH VITAMIN D [Concomitant]
     Route: 065
  6. VITAMIN D [Concomitant]
     Route: 065
  7. IRON [Concomitant]
     Route: 065
  8. HYDROCORTISONE [Concomitant]
     Route: 065

REACTIONS (1)
  - Colitis [Recovered/Resolved]
